FAERS Safety Report 4615278-9 (Version None)
Quarter: 2005Q1

REPORT INFORMATION
  Report Type: 
  Country: None (occurrence: None)
  Receive Date: 20050317
  Receipt Date: 20050309
  Transmission Date: 20050727
  Serious: Yes (Hospitalization)
  Sender: FDA-Public Use
  Company Number: AWBNIASPAND2004-50

PATIENT
  Age: 75 Year
  Sex: Female

DRUGS (2)
  1. NIASPAN [Suspect]
     Indication: HYPERLIPIDAEMIA
     Dosage: 375 MG PO
     Route: 048
     Dates: start: 20040615, end: 20040618
  2. BISOPROLOL FUMARATE [Concomitant]

REACTIONS (3)
  - CARDIOVASCULAR DISORDER [None]
  - DIZZINESS [None]
  - TREMOR [None]
